FAERS Safety Report 4273765-X (Version None)
Quarter: 2004Q1

REPORT INFORMATION
  Report Type: 
  Country: None (occurrence: None)
  Receive Date: 20040114
  Receipt Date: 20031215
  Transmission Date: 20041129
  Serious: Yes (Death, Hospitalization)
  Sender: FDA-Public Use
  Company Number: 6972

PATIENT
  Age: 75 Year
  Sex: Female

DRUGS (1)
  1. METHOTREXATE [Suspect]
     Indication: RHEUMATOID ARTHRITIS

REACTIONS (5)
  - ACUTE RESPIRATORY FAILURE [None]
  - BRONCHIECTASIS [None]
  - CONCOMITANT DISEASE PROGRESSION [None]
  - LUNG DISORDER [None]
  - LUNG INJURY [None]
